FAERS Safety Report 17195018 (Version 1)
Quarter: 2019Q4

REPORT INFORMATION
  Report Type: Spontaneous
  Country: US (occurrence: US)
  Receive Date: 20191224
  Receipt Date: 20191224
  Transmission Date: 20200122
  Serious: Yes (Hospitalization)
  Sender: FDA-Public Use
  Company Number: US-APOTEX-2019AP026541

PATIENT
  Sex: Female

DRUGS (6)
  1. PAMIDRONATE [Suspect]
     Active Substance: PAMIDRONATE DISODIUM
     Indication: OSTEOPOROSIS
  2. SPINRAZA [Concomitant]
     Active Substance: NUSINERSEN
     Indication: SPINAL MUSCULAR ATROPHY
     Dosage: UNK (STARTED IN LATE 2017)
     Route: 065
     Dates: start: 2017
  3. ZOLEDRONIC ACID INJECTION [Suspect]
     Active Substance: ZOLEDRONIC ACID
     Indication: OSTEOPOROSIS
  4. ZOLEDRONIC ACID INJECTION [Suspect]
     Active Substance: ZOLEDRONIC ACID
     Indication: SPINAL MUSCULAR ATROPHY
     Dosage: UNK 0.05 MG/KG/DOSE (MAXIMUM DOSE: 4 MG) EVERY 6 MONTHS
     Route: 040
  5. SPINRAZA [Concomitant]
     Active Substance: NUSINERSEN
     Indication: OSTEOPOROSIS
  6. PAMIDRONATE [Suspect]
     Active Substance: PAMIDRONATE DISODIUM
     Indication: SPINAL MUSCULAR ATROPHY
     Dosage: UNK 1.5 MG/KG/DOSE EVERY 3 MONTHS
     Route: 040

REACTIONS (2)
  - Pyrexia [Unknown]
  - Acute phase reaction [Unknown]
